FAERS Safety Report 7553687-9 (Version None)
Quarter: 2011Q2

REPORT INFORMATION
  Report Type: 
  Country: None (occurrence: None)
  Receive Date: 20110617
  Receipt Date: 20110607
  Transmission Date: 20111010
  Serious: Yes (Other)
  Sender: FDA-Public Use
  Company Number: US-AMGEN-USASP2011025295

PATIENT
  Age: 72 Year
  Sex: Female

DRUGS (3)
  1. NASACORT [Concomitant]
  2. ULORIC [Concomitant]
     Dosage: 40 MG, QD
  3. ENBREL [Suspect]
     Indication: RHEUMATOID ARTHRITIS
     Dosage: 50 MG, QWK
     Dates: start: 19980101

REACTIONS (6)
  - SCIATICA [None]
  - RHINORRHOEA [None]
  - CATARACT [None]
  - OEDEMA PERIPHERAL [None]
  - BACK DISORDER [None]
  - MUSCULOSKELETAL PAIN [None]
